FAERS Safety Report 24589196 (Version 1)
Quarter: 2024Q4

REPORT INFORMATION
  Report Type: Spontaneous
  Country: GB (occurrence: GB)
  Receive Date: 20241107
  Receipt Date: 20241107
  Transmission Date: 20250115
  Serious: Yes (Hospitalization, Other)
  Sender: ELI LILLY AND COMPANY
  Company Number: None

PATIENT
  Age: 50 Year
  Sex: Female
  Weight: 93 kg

DRUGS (1)
  1. MOUNJARO [Suspect]
     Active Substance: TIRZEPATIDE
     Indication: Weight control
     Dosage: 2.5MG  ONCE A WEEK
     Route: 065
     Dates: start: 20241018

REACTIONS (8)
  - Anxiety [Not Recovered/Not Resolved]
  - Depressed mood [Unknown]
  - Blood pressure fluctuation [Unknown]
  - Palpitations [Unknown]
  - Crying [Unknown]
  - Dry mouth [Unknown]
  - Tremor [Unknown]
  - Dizziness [Unknown]

NARRATIVE: CASE EVENT DATE: 20241018
